FAERS Safety Report 25405661 (Version 6)
Quarter: 2025Q4

REPORT INFORMATION
  Report Type: Report from Study
  Country: US (occurrence: US)
  Receive Date: 20250606
  Receipt Date: 20251003
  Transmission Date: 20260117
  Serious: No
  Sender: SANDOZ
  Company Number: US-SANDOZ-SDZ2025US039366

PATIENT
  Sex: Female

DRUGS (4)
  1. OMNITROPE [Suspect]
     Active Substance: SOMATROPIN
     Indication: Product used for unknown indication
     Dosage: 0.6 MG, QD
     Route: 058
     Dates: start: 20250505
  2. OMNITROPE [Suspect]
     Active Substance: SOMATROPIN
     Indication: Product used for unknown indication
     Dosage: 0.6 MG, QD
     Route: 058
     Dates: start: 20250505
  3. OMNITROPE [Suspect]
     Active Substance: SOMATROPIN
     Dosage: 0.6 MG, QD (10 MG / 1.5 ML SOLUTION FOR INJECTION)
     Route: 058
  4. OMNITROPE [Suspect]
     Active Substance: SOMATROPIN
     Dosage: 0.6 MG, QD (10 MG / 1.5 ML SOLUTION FOR INJECTION)
     Route: 058

REACTIONS (4)
  - Injection site discharge [Unknown]
  - Product storage error [Unknown]
  - Product use complaint [Unknown]
  - Device leakage [Unknown]

NARRATIVE: CASE EVENT DATE: 20250101
